FAERS Safety Report 5734613-1 (Version None)
Quarter: 2008Q2

REPORT INFORMATION
  Report Type: 
  Country: None (occurrence: None)
  Receive Date: 20080512
  Receipt Date: 20080507
  Transmission Date: 20081010
  Serious: Yes (Death)
  Sender: FDA-Public Use
  Company Number: PHHY2008CA07404

PATIENT
  Sex: Male

DRUGS (1)
  1. LAMISIL [Suspect]

REACTIONS (1)
  - PROSTATE CANCER [None]
